FAERS Safety Report 5106100-5 (Version None)
Quarter: 2006Q3

REPORT INFORMATION
  Report Type: 
  Country: None (occurrence: None)
  Receive Date: 20060912
  Receipt Date: 20060828
  Transmission Date: 20061208
  Serious: Yes (Hospitalization)
  Sender: FDA-Public Use
  Company Number: US-CVT-061459

PATIENT
  Age: 46 Year
  Sex: Male

DRUGS (20)
  1. RANEXA [Suspect]
     Indication: ANGINA PECTORIS
     Dosage: SEE IMAGE
     Route: 048
     Dates: start: 20060613, end: 20060701
  2. RANEXA [Suspect]
     Indication: ANGINA PECTORIS
     Dosage: SEE IMAGE
     Route: 048
     Dates: start: 20060701
  3. PLAVIX [Concomitant]
  4. ASPIRIN [Concomitant]
  5. SPIRONOLACTONE [Concomitant]
  6. ALTACE [Concomitant]
  7. COREG [Concomitant]
  8. ISOSORBIDE DINITRATE [Concomitant]
  9. DIGOXIN [Concomitant]
  10. LASIX [Concomitant]
  11. ATIVAN [Concomitant]
  12. REGLAN [Concomitant]
  13. VYTORIN [Concomitant]
  14. NITRO (GLYCERYL TRINITRATE) [Concomitant]
  15. AMITRIPTYLINE HCL [Concomitant]
  16. NOVOLIN (INSULIN) [Concomitant]
  17. NOVOLIN R [Concomitant]
  18. FOLIC ACID [Concomitant]
  19. NIACIN [Concomitant]
  20. MULTIVITAMINS (ASCORBIC ACID, ERGOCALCIFEROL, FOLIC ACID, NICOTINAMIDE [Concomitant]

REACTIONS (4)
  - ALANINE AMINOTRANSFERASE INCREASED [None]
  - ASPARTATE AMINOTRANSFERASE INCREASED [None]
  - DEEP VEIN THROMBOSIS [None]
  - HEPATIC ENZYME INCREASED [None]
